FAERS Safety Report 5889061-0 (Version None)
Quarter: 2008Q3

REPORT INFORMATION
  Report Type: 
  Country: None (occurrence: None)
  Receive Date: 20080919
  Receipt Date: 20080513
  Transmission Date: 20090109
  Serious: No
  Sender: FDA-Public Use
  Company Number: US-KINGPHARMUSA00001-K200800548

PATIENT

DRUGS (6)
  1. SONATA [Suspect]
     Indication: INSOMNIA
  2. LUNESTA [Concomitant]
     Indication: INSOMNIA
     Dosage: 3 MG, QHS
     Route: 048
     Dates: start: 20060101
  3. LUNESTA [Concomitant]
     Dosage: 1.5 MG, QHS
     Route: 048
     Dates: start: 20070101
  4. CELEXA [Concomitant]
  5. ATIVAN [Concomitant]
  6. AMBIEN [Concomitant]

REACTIONS (1)
  - DRUG INEFFECTIVE [None]
